FAERS Safety Report 10255838 (Version 1)
Quarter: 2014Q2

REPORT INFORMATION
  Report Type: Spontaneous
  Country: US (occurrence: US)
  Receive Date: 20140624
  Receipt Date: 20140624
  Transmission Date: 20141212
  Serious: No
  Sender: FDA-Public Use
  Company Number: US-ZOGENIX, INC.-2012ZX000006

PATIENT
  Sex: Female
  Weight: 74 kg

DRUGS (7)
  1. SUMAVEL DOSEPRO [Suspect]
     Indication: MIGRAINE
  2. VENLAFAXINE [Concomitant]
     Indication: DEPRESSION
     Route: 048
  3. CLONAZEPAM [Concomitant]
     Indication: ANXIETY
  4. LAMOTRIGINE [Concomitant]
  5. INFLIXIMAB [Concomitant]
     Indication: RHEUMATOID ARTHRITIS
  6. NAPROXEN [Concomitant]
     Indication: MIGRAINE
  7. MORPHINE [Concomitant]
     Indication: PAIN
     Route: 048

REACTIONS (3)
  - Injection site pain [Recovered/Resolved]
  - Drug effect incomplete [Recovered/Resolved]
  - Drug administered at inappropriate site [Recovered/Resolved]
